FAERS Safety Report 15251432 (Version 1)
Quarter: 2018Q3

REPORT INFORMATION
  Report Type: Spontaneous
  Country: DE (occurrence: DE)
  Receive Date: 20180807
  Receipt Date: 20180807
  Transmission Date: 20181010
  Serious: Yes (Other)
  Sender: FDA-Public Use
  Company Number: DE-TEVA-2018-DE-935566

PATIENT
  Age: 77 Year
  Sex: Female

DRUGS (2)
  1. LETROZOLE. [Suspect]
     Active Substance: LETROZOLE
     Dosage: UNK UNK, CYCLIC
  2. IBRANCE [Suspect]
     Active Substance: PALBOCICLIB
     Dosage: CYCLIC

REACTIONS (1)
  - Neutropenia [Unknown]
